FAERS Safety Report 25873393 (Version 1)
Quarter: 2025Q4

REPORT INFORMATION
  Report Type: Spontaneous
  Country: EU (occurrence: EU)
  Receive Date: 20251002
  Receipt Date: 20251002
  Transmission Date: 20260117
  Serious: Yes (Hospitalization)
  Sender: MYLAN
  Company Number: None

PATIENT
  Age: 91 Year
  Sex: Female
  Weight: 43 kg

DRUGS (20)
  1. PANTOPRAZOLE [Suspect]
     Active Substance: PANTOPRAZOLE
     Indication: Gastrointestinal disorder
     Dosage: UNK
     Dates: start: 20250530, end: 20250611
  2. PANTOPRAZOLE [Suspect]
     Active Substance: PANTOPRAZOLE
     Dosage: UNK
     Route: 048
     Dates: start: 20250530, end: 20250611
  3. PANTOPRAZOLE [Suspect]
     Active Substance: PANTOPRAZOLE
     Dosage: UNK
     Route: 048
     Dates: start: 20250530, end: 20250611
  4. PANTOPRAZOLE [Suspect]
     Active Substance: PANTOPRAZOLE
     Dosage: UNK
     Dates: start: 20250530, end: 20250611
  5. LINEZOLID [Suspect]
     Active Substance: LINEZOLID
     Indication: Infection
     Dosage: 2 DOSAGE FORM
     Dates: start: 20250519, end: 20250529
  6. LINEZOLID [Suspect]
     Active Substance: LINEZOLID
     Dosage: 2 DOSAGE FORM
     Route: 048
     Dates: start: 20250519, end: 20250529
  7. LINEZOLID [Suspect]
     Active Substance: LINEZOLID
     Dosage: 2 DOSAGE FORM
     Route: 048
     Dates: start: 20250519, end: 20250529
  8. LINEZOLID [Suspect]
     Active Substance: LINEZOLID
     Dosage: 2 DOSAGE FORM
     Dates: start: 20250519, end: 20250529
  9. AMOXICILLIN [Suspect]
     Active Substance: AMOXICILLIN
     Indication: Infection
     Dosage: UNK
     Dates: start: 20250514, end: 20250515
  10. AMOXICILLIN [Suspect]
     Active Substance: AMOXICILLIN
     Dosage: UNK
     Route: 048
     Dates: start: 20250514, end: 20250515
  11. AMOXICILLIN [Suspect]
     Active Substance: AMOXICILLIN
     Dosage: UNK
     Route: 048
     Dates: start: 20250514, end: 20250515
  12. AMOXICILLIN [Suspect]
     Active Substance: AMOXICILLIN
     Dosage: UNK
     Dates: start: 20250514, end: 20250515
  13. CLINDAMYCIN [Suspect]
     Active Substance: CLINDAMYCIN
     Indication: Infection
     Dosage: 6 DOSAGE FORM
     Dates: start: 20250517, end: 20250519
  14. CLINDAMYCIN [Suspect]
     Active Substance: CLINDAMYCIN
     Dosage: 6 DOSAGE FORM
     Route: 048
     Dates: start: 20250517, end: 20250519
  15. CLINDAMYCIN [Suspect]
     Active Substance: CLINDAMYCIN
     Dosage: 6 DOSAGE FORM
     Route: 048
     Dates: start: 20250517, end: 20250519
  16. CLINDAMYCIN [Suspect]
     Active Substance: CLINDAMYCIN
     Dosage: 6 DOSAGE FORM
     Dates: start: 20250517, end: 20250519
  17. PIPERACILLIN SODIUM\TAZOBACTAM SODIUM [Suspect]
     Active Substance: PIPERACILLIN SODIUM\TAZOBACTAM SODIUM
     Indication: Infection
     Dosage: 3 DOSAGE FORM
     Dates: start: 20250516, end: 20250519
  18. PIPERACILLIN SODIUM\TAZOBACTAM SODIUM [Suspect]
     Active Substance: PIPERACILLIN SODIUM\TAZOBACTAM SODIUM
     Dosage: 3 DOSAGE FORM
     Route: 042
     Dates: start: 20250516, end: 20250519
  19. PIPERACILLIN SODIUM\TAZOBACTAM SODIUM [Suspect]
     Active Substance: PIPERACILLIN SODIUM\TAZOBACTAM SODIUM
     Dosage: 3 DOSAGE FORM
     Route: 042
     Dates: start: 20250516, end: 20250519
  20. PIPERACILLIN SODIUM\TAZOBACTAM SODIUM [Suspect]
     Active Substance: PIPERACILLIN SODIUM\TAZOBACTAM SODIUM
     Dosage: 3 DOSAGE FORM
     Dates: start: 20250516, end: 20250519

REACTIONS (1)
  - Clostridium difficile colitis [Recovered/Resolved]

NARRATIVE: CASE EVENT DATE: 20250610
